FAERS Safety Report 7810191-8 (Version None)
Quarter: 2011Q4

REPORT INFORMATION
  Report Type: 
  Country: None (occurrence: None)
  Receive Date: 20111006
  Receipt Date: 20110928
  Transmission Date: 20120403
  Serious: Yes (Hospitalization)
  Sender: FDA-Public Use
  Company Number: 2011SP003289

PATIENT
  Age: 30 Year
  Sex: Male

DRUGS (5)
  1. LATUDA [Suspect]
     Indication: PSYCHOTIC DISORDER
     Dosage: 40 MG; ;ORAL
     Route: 048
     Dates: start: 20110823
  2. KLONOPIN [Concomitant]
  3. ZYPREXA [Concomitant]
  4. CELEXA [Concomitant]
  5. TRAZODONE HYDROCHLORIDE [Concomitant]

REACTIONS (3)
  - MOOD ALTERED [None]
  - ASPARTATE AMINOTRANSFERASE INCREASED [None]
  - ALANINE AMINOTRANSFERASE INCREASED [None]
